FAERS Safety Report 24873167 (Version 1)
Quarter: 2025Q1

REPORT INFORMATION
  Report Type: Spontaneous
  Country: US (occurrence: US)
  Receive Date: 20250122
  Receipt Date: 20250122
  Transmission Date: 20250409
  Serious: Yes (Death)
  Sender: AZURITY PHARMACEUTICALS
  Company Number: US-AZURITY PHARMACEUTICALS, INC.-AZR202501-000344

PATIENT
  Age: 32 Year
  Sex: Female

DRUGS (10)
  1. AMPHETAMINE SULFATE [Suspect]
     Active Substance: AMPHETAMINE SULFATE
     Indication: Product used for unknown indication
     Route: 048
  2. AMPHETAMINE SULFATE [Suspect]
     Active Substance: AMPHETAMINE SULFATE
     Route: 051
  3. GABAPENTIN [Suspect]
     Active Substance: GABAPENTIN
     Indication: Product used for unknown indication
     Route: 048
  4. GABAPENTIN [Suspect]
     Active Substance: GABAPENTIN
     Route: 051
  5. FENTANYL [Suspect]
     Active Substance: FENTANYL
     Indication: Product used for unknown indication
     Route: 048
  6. FENTANYL [Suspect]
     Active Substance: FENTANYL
     Route: 051
  7. METHAMPHETAMINE [Suspect]
     Active Substance: METHAMPHETAMINE
     Indication: Product used for unknown indication
     Route: 048
  8. METHAMPHETAMINE [Suspect]
     Active Substance: METHAMPHETAMINE
     Route: 051
  9. COCAINE [Suspect]
     Active Substance: COCAINE
     Indication: Product used for unknown indication
     Route: 048
  10. COCAINE [Suspect]
     Active Substance: COCAINE
     Route: 051

REACTIONS (3)
  - Cardiac arrest [Fatal]
  - Respiratory arrest [Fatal]
  - Death [Fatal]

NARRATIVE: CASE EVENT DATE: 20230101
